FAERS Safety Report 5282805-0 (Version None)
Quarter: 2007Q2

REPORT INFORMATION
  Report Type: 
  Country: None (occurrence: None)
  Receive Date: 20070402
  Receipt Date: 20070326
  Transmission Date: 20071010
  Serious: Yes (Other)
  Sender: FDA-Public Use
  Company Number: US-JNJFOC-20060801828

PATIENT
  Sex: Female
  Weight: 94.26 kg

DRUGS (3)
  1. RISPERDAL [Suspect]
     Indication: DEPRESSION
  2. SEROQUEL [Suspect]
     Indication: MAJOR DEPRESSION
  3. LEXAPRO [Concomitant]

REACTIONS (5)
  - BLOOD CHOLESTEROL INCREASED [None]
  - DIABETES MELLITUS [None]
  - HYPERLIPIDAEMIA [None]
  - LIVER DISORDER [None]
  - WEIGHT INCREASED [None]
